FAERS Safety Report 10982975 (Version 1)
Quarter: 2015Q2

REPORT INFORMATION
  Report Type: Spontaneous
  Country: US (occurrence: None)
  Receive Date: 20150402
  Receipt Date: 20150402
  Transmission Date: 20150821
  Serious: Yes (Other)
  Sender: FDA-Public Use
  Company Number: None

PATIENT
  Age: 23 Year
  Sex: Female
  Weight: 62 kg

DRUGS (4)
  1. PIRITON [Suspect]
     Active Substance: CHLORPHENIRAMINE MALEATE
     Indication: RHINORRHOEA
     Dosage: 1 OR 2 PILLS ??ALMOST 10 DAYS
     Route: 048
  2. PIRITON [Suspect]
     Active Substance: CHLORPHENIRAMINE MALEATE
     Indication: TONSILLITIS
     Dosage: 1 OR 2 PILLS ??ALMOST 10 DAYS
     Route: 048
  3. PIRITON [Suspect]
     Active Substance: CHLORPHENIRAMINE MALEATE
     Indication: PHARYNGITIS
     Dosage: 1 OR 2 PILLS ??ALMOST 10 DAYS
     Route: 048
  4. BUSCOPAN [Concomitant]
     Active Substance: BUTYLSCOPOLAMINE BROMIDE

REACTIONS (1)
  - Amenorrhoea [None]

NARRATIVE: CASE EVENT DATE: 20150225
